FAERS Safety Report 14198451 (Version 1)
Quarter: 2017Q4

REPORT INFORMATION
  Report Type: Report from Study
  Country: JP (occurrence: JP)
  Receive Date: 20171117
  Receipt Date: 20171117
  Transmission Date: 20180321
  Serious: Yes (Other)
  Sender: FDA-Public Use
  Company Number: JP-ROCHE-2022942

PATIENT
  Age: 58 Year
  Sex: Female

DRUGS (1)
  1. RITUXIMAB. [Suspect]
     Active Substance: RITUXIMAB
     Indication: B-CELL LYMPHOMA
     Dosage: 10MG/ML?SUBSEQUENT DOSES RECEIVED ON 13/OCT/2011, 20/OCT/2011, 27/OCT/2011, 27/DEC/2011, 21/FEB/2012
     Route: 041
     Dates: start: 20111006, end: 20111006

REACTIONS (3)
  - Gastric stenosis [Recovered/Resolved]
  - Pharyngeal stenosis [Recovered/Resolved]
  - Neutrophil count decreased [Recovered/Resolved]

NARRATIVE: CASE EVENT DATE: 20111006
